FAERS Safety Report 24276686 (Version 2)
Quarter: 2025Q1

REPORT INFORMATION
  Report Type: Spontaneous
  Country: US (occurrence: IN)
  Receive Date: 20240903
  Receipt Date: 20250108
  Transmission Date: 20250408
  Serious: Yes (Hospitalization, Disabling)
  Sender: Kilitch Healthcare
  Company Number: US-KHC-000159

PATIENT
  Age: 75 Year
  Sex: Male

DRUGS (3)
  1. DRY EYE RELIEF (CARBOXYMETHYLCELLULOSE SODIUM) [Suspect]
     Active Substance: CARBOXYMETHYLCELLULOSE SODIUM
     Indication: Eye disorder
     Route: 065
     Dates: start: 202305, end: 202306
  2. TELMISARTAN [Concomitant]
     Active Substance: TELMISARTAN
     Indication: Blood pressure measurement
     Route: 048
  3. SUCRAZIDE [Concomitant]
     Indication: Diabetes mellitus
     Route: 048

REACTIONS (2)
  - Recalled product administered [Unknown]
  - Eye infection bacterial [Recovering/Resolving]

NARRATIVE: CASE EVENT DATE: 20230101
